FAERS Safety Report 16818012 (Version 2)
Quarter: 2019Q4

REPORT INFORMATION
  Report Type: Spontaneous
  Country: DE (occurrence: DE)
  Receive Date: 20190917
  Receipt Date: 20191220
  Transmission Date: 20200122
  Serious: Yes (Hospitalization)
  Sender: FDA-Public Use
  Company Number: DE-MYLANLABS-2019M1087354

PATIENT
  Age: 38 Year
  Sex: Male

DRUGS (14)
  1. LEPONEX [Suspect]
     Active Substance: CLOZAPINE
     Indication: SCHIZOPHRENIA
     Dosage: 450 MILLIGRAM
     Route: 065
  2. FLUVOXAMIN                         /00615202/ [Concomitant]
     Indication: PRODUCT USED FOR UNKNOWN INDICATION
     Dosage: 50 MILLIGRAM
     Route: 065
  3. NEBIVOLOL. [Concomitant]
     Active Substance: NEBIVOLOL
     Indication: PRODUCT USED FOR UNKNOWN INDICATION
     Dosage: 5 MG, UNK (FOR MANY YEARS)
     Route: 065
  4. HALDOL [Interacting]
     Active Substance: HALOPERIDOL
     Indication: PRODUCT USED FOR UNKNOWN INDICATION
     Dosage: UNK
     Route: 065
     Dates: start: 2017
  5. FLUVOXAMIN                         /00615202/ [Concomitant]
     Dosage: 100 MILLIGRAM, QD
     Route: 065
     Dates: start: 2018
  6. HALDOL DECANOAS [Concomitant]
     Active Substance: HALOPERIDOL DECANOATE
     Dosage: 150 MILLIGRAM, BIWEEKLY
     Route: 058
     Dates: start: 2017
  7. AKINETON                           /00079503/ [Concomitant]
     Active Substance: BIPERIDEN LACTATE
     Indication: MUSCLE RIGIDITY
     Dosage: 4 MILLIGRAM, QD (2-2.5 HOURS AFTER USE IMPROVEMENT)
     Route: 048
  8. LEPONEX [Interacting]
     Active Substance: CLOZAPINE
     Dosage: 50 MG-0 MG-450 MG
     Route: 065
     Dates: start: 201806
  9. CLOZAPIN RATIOPHARM [Interacting]
     Active Substance: CLOZAPINE
     Indication: SCHIZOPHRENIA
     Dosage: 500 MG, QD (DAILY DOSE 50 MG- 0-450 MG)
     Route: 048
     Dates: start: 2018
  10. LEPONEX [Interacting]
     Active Substance: CLOZAPINE
     Dosage: UNK
     Route: 065
  11. ORFIRIL [Concomitant]
     Active Substance: VALPROATE SODIUM
     Indication: EPILEPSY
     Dosage: 900 MG-0 MG-900 MG
     Route: 065
  12. ORFIRIL [Concomitant]
     Active Substance: VALPROATE SODIUM
     Dosage: UNK
     Route: 065
  13. HALDOL DECANOATE [Interacting]
     Active Substance: HALOPERIDOL DECANOATE
     Indication: PRODUCT USED FOR UNKNOWN INDICATION
     Dosage: 150 MILLIGRAM, QD
     Dates: start: 2017
  14. FLUVOXAMIN                         /00615202/ [Concomitant]
     Dosage: 50 MG-0 MG-50 MG
     Route: 065

REACTIONS (10)
  - Emotional poverty [Unknown]
  - Deformity [Unknown]
  - Trismus [Not Recovered/Not Resolved]
  - Muscle rigidity [Unknown]
  - Mental disorder [Not Recovered/Not Resolved]
  - Rathke^s cleft cyst [Not Recovered/Not Resolved]
  - Drug interaction [Unknown]
  - Urinary incontinence [Unknown]
  - Reduced facial expression [Not Recovered/Not Resolved]
  - Loss of consciousness [Not Recovered/Not Resolved]

NARRATIVE: CASE EVENT DATE: 2017
